FAERS Safety Report 7374894-4 (Version None)
Quarter: 2011Q1

REPORT INFORMATION
  Report Type: 
  Country: None (occurrence: None)
  Receive Date: 20110325
  Receipt Date: 20110302
  Transmission Date: 20110831
  Serious: No
  Sender: FDA-Public Use
  Company Number: US-B.I. PHARMACEUTICALS,INC./RIDGEFIELD-2011-BP-03608BP

PATIENT
  Sex: Male

DRUGS (6)
  1. CELEBREX [Concomitant]
     Dosage: 200 MG
     Route: 048
  2. MULTAQ [Concomitant]
     Dosage: 800 MG
     Route: 048
  3. LEVOTHYROXINE SODIUM [Concomitant]
     Dosage: 25 MG
     Route: 048
  4. DIGOXIN [Concomitant]
     Dosage: 25 MG
     Route: 048
  5. PRADAXA [Suspect]
     Indication: HEART RATE IRREGULAR
     Dosage: 300 MG
     Route: 048
     Dates: start: 20101222
  6. LOSARTAN POTASSIUM [Concomitant]
     Dosage: 125 MG
     Route: 048

REACTIONS (3)
  - GASTRIC DISORDER [None]
  - NAUSEA [None]
  - DYSPEPSIA [None]
